FAERS Safety Report 8840255 (Version 2)
Quarter: 2012Q4

REPORT INFORMATION
  Report Type: 
  Country: JP (occurrence: JP)
  Receive Date: 20121015
  Receipt Date: 20121030
  Transmission Date: 20130627
  Serious: Yes (Hospitalization)
  Sender: FDA-Public Use
  Company Number: JP-GLAXOSMITHKLINE-B0837290A

PATIENT
  Age: 48 Year
  Sex: Male
  Weight: 86 kg

DRUGS (2)
  1. ARIXTRA [Suspect]
     Indication: THROMBOSIS PROPHYLAXIS
     Dosage: 2.5MG Per day
     Route: 058
     Dates: start: 20120921, end: 20121001
  2. LORCAM [Concomitant]
     Dosage: 1IUAX Three times per day
     Route: 048

REACTIONS (5)
  - Haemorrhage [Recovering/Resolving]
  - Pain in extremity [Unknown]
  - Haematoma [Unknown]
  - Anaemia [Unknown]
  - Pain [Recovering/Resolving]
